FAERS Safety Report 8818033 (Version 1)
Quarter: 2012Q4

REPORT INFORMATION
  Report Type: 
  Country: JP (occurrence: JP)
  Receive Date: 20121001
  Receipt Date: 20121001
  Transmission Date: 20130627
  Serious: Yes (Life-Threatening)
  Sender: FDA-Public Use
  Company Number: JP-ASTRAZENECA-2012SE74854

PATIENT
  Age: 59 Year
  Sex: Female

DRUGS (6)
  1. DIPRIVAN [Suspect]
     Indication: INDUCTION OF ANAESTHESIA
     Route: 042
  2. CEFAZOLIN SODIUM [Concomitant]
     Dosage: Dose unknown
     Route: 040
  3. FENTANYL [Concomitant]
     Indication: INDUCTION OF ANAESTHESIA
     Dosage: Dose unknown
     Route: 065
  4. ROCURONIUM BROMIDE [Concomitant]
     Indication: INDUCTION OF ANAESTHESIA
     Dosage: Dose unknown
     Route: 065
  5. SEVOFLURANE [Concomitant]
     Indication: INDUCTION OF ANAESTHESIA
     Dosage: Dose unknown
     Route: 065
  6. REMIFENTANIL HYDROCHLORIDE [Concomitant]
     Indication: INDUCTION OF ANAESTHESIA
     Dosage: Dose unknown
     Route: 065

REACTIONS (1)
  - Anaphylactic shock [Recovered/Resolved]
